FAERS Safety Report 19689377 (Version 2)
Quarter: 2022Q1

REPORT INFORMATION
  Report Type: Report from Study
  Country: JP (occurrence: JP)
  Receive Date: 20210812
  Receipt Date: 20220208
  Transmission Date: 20220423
  Serious: Yes (Hospitalization)
  Sender: FDA-Public Use
  Company Number: JP-RECORDATI RARE DISEASE INC.-2021003134

PATIENT
  Age: 0 Year
  Sex: Female
  Weight: 1.316 kg

DRUGS (8)
  1. NEOPROFEN [Suspect]
     Active Substance: IBUPROFEN LYSINE
     Indication: Patent ductus arteriosus
     Dosage: 13 MILLIGRAM, QD
     Route: 042
     Dates: start: 20201027, end: 20201027
  2. NEOPROFEN [Suspect]
     Active Substance: IBUPROFEN LYSINE
     Dosage: 7 MILLIGRAM, QD
     Route: 042
     Dates: start: 20201028, end: 20201028
  3. NEOPROFEN [Suspect]
     Active Substance: IBUPROFEN LYSINE
     Dosage: 7 MILLIGRAM, QD
     Route: 042
     Dates: start: 20201029, end: 20201029
  4. PLEAMIN P [Concomitant]
     Indication: Nutritional supplementation
     Dosage: UNK UNK, UNK
     Route: 042
     Dates: start: 20201027, end: 20201109
  5. SOYBEAN OIL [Concomitant]
     Active Substance: SOYBEAN OIL
     Indication: Nutritional supplementation
     Dosage: UNK UNK, UNK
     Route: 042
     Dates: start: 20201027, end: 20201109
  6. MEYLON [Concomitant]
     Active Substance: SODIUM BICARBONATE
     Indication: Metabolic acidosis
     Dosage: UNK UNK, UNK
     Route: 042
     Dates: start: 20201027, end: 20201030
  7. FENTANYL CITRATE [Concomitant]
     Active Substance: FENTANYL CITRATE
     Indication: Sedation
     Dosage: UNK UNK, UNK
     Route: 042
     Dates: start: 20201026, end: 20201028
  8. MENATETRENONE [Concomitant]
     Active Substance: MENATETRENONE
     Indication: Vitamin supplementation
     Dosage: UNK UNK, UNK
     Route: 042
     Dates: start: 20201026, end: 20201027

REACTIONS (3)
  - Laryngeal stenosis [Recovering/Resolving]
  - Metabolic acidosis [Recovered/Resolved]
  - Jaundice [Recovered/Resolved]

NARRATIVE: CASE EVENT DATE: 20201027
